FAERS Safety Report 22356393 (Version 1)
Quarter: 2023Q2

REPORT INFORMATION
  Report Type: Spontaneous
  Country: US (occurrence: None)
  Receive Date: 20230523
  Receipt Date: 20230523
  Transmission Date: 20230722
  Serious: Yes (Death)
  Sender: FDA-Public Use
  Company Number: None

PATIENT
  Sex: Male
  Weight: 71.21 kg

DRUGS (4)
  1. RETACRIT [Suspect]
     Active Substance: EPOETIN ALFA-EPBX
     Indication: Laryngeal cancer
     Dosage: 20000 UNITS WEEKLY SUBCUTANEOUSLY
     Route: 058
  2. ATORVASTATIN [Concomitant]
     Active Substance: ATORVASTATIN
  3. FOLIC ACID [Concomitant]
     Active Substance: FOLIC ACID
  4. PANTOPRAZOLE [Concomitant]
     Active Substance: PANTOPRAZOLE

REACTIONS (1)
  - Death [None]
